FAERS Safety Report 12525052 (Version 1)
Quarter: 2016Q3

REPORT INFORMATION
  Report Type: Spontaneous
  Country: FR (occurrence: FR)
  Receive Date: 20160704
  Receipt Date: 20160704
  Transmission Date: 20161109
  Serious: Yes (Hospitalization)
  Sender: FDA-Public Use
  Company Number: FR-PFIZER INC-2016319362

PATIENT
  Age: 46 Year
  Sex: Female

DRUGS (3)
  1. XANAX [Suspect]
     Active Substance: ALPRAZOLAM
     Dosage: 60 DF OF 0.25 MG, SINGLE
     Route: 048
     Dates: start: 20151220, end: 20151220
  2. PARACETAMOL [Suspect]
     Active Substance: ACETAMINOPHEN
     Dosage: 24 G, SINGLE
     Route: 048
     Dates: start: 20151220, end: 20151220
  3. ANEXATE [Concomitant]
     Active Substance: FLUMAZENIL
     Dosage: UNK
     Dates: start: 20151220, end: 20151220

REACTIONS (2)
  - Overdose [Recovered/Resolved]
  - Acute hepatic failure [Recovered/Resolved]

NARRATIVE: CASE EVENT DATE: 20151220
